FAERS Safety Report 5349380-3 (Version None)
Quarter: 2007Q2

REPORT INFORMATION
  Report Type: 
  Country: None (occurrence: None)
  Receive Date: 20070607
  Receipt Date: 20070531
  Transmission Date: 20071010
  Serious: No
  Sender: FDA-Public Use
  Company Number: US-ASTRAZENECA-2006UW10953

PATIENT
  Age: 16776 Day
  Sex: Male
  Weight: 113.6 kg

DRUGS (3)
  1. SEROQUEL [Suspect]
     Indication: DEPRESSION
     Route: 048
     Dates: start: 20010101, end: 20040905
  2. ZYPREXA [Suspect]
  3. GEODON [Concomitant]

REACTIONS (1)
  - DIABETES MELLITUS [None]
